FAERS Safety Report 4788949-1 (Version None)
Quarter: 2005Q4

REPORT INFORMATION
  Report Type: 
  Country: None (occurrence: None)
  Receive Date: 20051004
  Receipt Date: 20050921
  Transmission Date: 20060501
  Serious: Yes (Hospitalization)
  Sender: FDA-Public Use
  Company Number: 2005131554

PATIENT
  Age: 64 Year
  Sex: Female
  Weight: 70.3075 kg

DRUGS (6)
  1. BENADRYL [Suspect]
     Indication: MULTIPLE ALLERGIES
     Dosage: 2 ULTRATABS IN AM AND PM AS NEEDED, ORAL
     Route: 048
     Dates: end: 20050921
  2. CARDIAC THERAPY (CARDIAC THERAPY) [Concomitant]
  3. POTASSIUM (POTASSIUM) [Concomitant]
  4. MUSCLE RELAXANTS (MUSCLE RELAXANTS) [Concomitant]
  5. ANALGESICS (ANALGESICS) [Concomitant]
  6. FUROSEMIDE [Concomitant]

REACTIONS (2)
  - CARDIAC FAILURE CONGESTIVE [None]
  - MYOCARDIAL INFARCTION [None]
